FAERS Safety Report 21998348 (Version 3)
Quarter: 2023Q1

REPORT INFORMATION
  Report Type: Report from Study
  Country: US (occurrence: None)
  Receive Date: 20230216
  Receipt Date: 20230315
  Transmission Date: 20230418
  Serious: Yes (Hospitalization)
  Sender: FDA-Public Use
  Company Number: US-ROCHE-3285224

PATIENT
  Age: 74 Year
  Sex: Female
  Weight: 70.9 kg

DRUGS (53)
  1. RITUXIMAB [Suspect]
     Active Substance: RITUXIMAB
     Indication: Diffuse large B-cell lymphoma stage IV
     Dosage: DATE OF LAST DOSE (375 MG/M2) PRIOR TO EVENT 01/JUL/2022
     Route: 042
     Dates: start: 20220430, end: 20220701
  2. RITUXIMAB [Suspect]
     Active Substance: RITUXIMAB
     Dosage: DATE OF LAST DOSE PRIOR TO EVENT 01/JUL/2022
     Route: 042
     Dates: start: 20220729
  3. EPCORITAMAB [Suspect]
     Active Substance: EPCORITAMAB
     Indication: Diffuse large B-cell lymphoma stage IV
     Dosage: ON 15-JUL-2022, THE PATIENT RECEIVED EPCORITAMAB AT 48 MG.
     Route: 058
     Dates: start: 20220429, end: 20220429
  4. EPCORITAMAB [Suspect]
     Active Substance: EPCORITAMAB
     Route: 058
     Dates: start: 20220506, end: 20220506
  5. EPCORITAMAB [Suspect]
     Active Substance: EPCORITAMAB
     Route: 058
     Dates: start: 20220513, end: 20220715
  6. EPCORITAMAB [Suspect]
     Active Substance: EPCORITAMAB
     Dosage: ON 22-AUG-2022, THE PATIENT RECEIVED EPCORITAMAB AT 48 MG.
     Route: 058
     Dates: start: 20220729
  7. CYCLOPHOSPHAMIDE [Suspect]
     Active Substance: CYCLOPHOSPHAMIDE
     Indication: Diffuse large B-cell lymphoma stage IV
     Dosage: ON 01-JUL-2022, THE PATIENT RECEIVED CYCLOPHOSPHAMIDE AT 750 MG/M2.
     Route: 042
     Dates: start: 20220429, end: 20220701
  8. CYCLOPHOSPHAMIDE [Suspect]
     Active Substance: CYCLOPHOSPHAMIDE
     Route: 042
     Dates: start: 20220729
  9. DOXORUBICIN [Suspect]
     Active Substance: DOXORUBICIN
     Indication: Diffuse large B-cell lymphoma stage IV
     Dosage: ON 01-JUL-2022, THE PATIENT RECEIVED DOXORUBICIN AT 50 MG/M2.
     Route: 042
     Dates: start: 20220429, end: 20220701
  10. DOXORUBICIN [Suspect]
     Active Substance: DOXORUBICIN
     Route: 042
     Dates: start: 20220729
  11. VINCRISTINE [Suspect]
     Active Substance: VINCRISTINE
     Indication: Diffuse large B-cell lymphoma stage IV
     Dosage: ON 01-JUL-2022, THE PATIENT RECEIVED VINCRISTINE AT 1.4 MG/M2.
     Route: 042
     Dates: start: 20220429, end: 20220701
  12. VINCRISTINE [Suspect]
     Active Substance: VINCRISTINE
     Route: 042
     Dates: start: 20220729
  13. PREDNISONE [Suspect]
     Active Substance: PREDNISONE
     Indication: Diffuse large B-cell lymphoma stage IV
     Dosage: ON 15-JUL-2022, THE PATIENT RECEIVED PREDNISONE AT 100 MG.
     Route: 048
     Dates: start: 20220429, end: 20220503
  14. PREDNISONE [Suspect]
     Active Substance: PREDNISONE
     Route: 048
     Dates: start: 20220513, end: 20220516
  15. PREDNISONE [Suspect]
     Active Substance: PREDNISONE
     Route: 048
     Dates: start: 20220520, end: 20220524
  16. PREDNISONE [Suspect]
     Active Substance: PREDNISONE
     Route: 048
     Dates: start: 20220610, end: 20220614
  17. PREDNISONE [Suspect]
     Active Substance: PREDNISONE
     Route: 048
     Dates: start: 20220701, end: 20220705
  18. CIPROFLOXACIN [Concomitant]
     Active Substance: CIPROFLOXACIN
     Dates: start: 20220713, end: 20220719
  19. DIPHENHYDRAMINE [Concomitant]
     Active Substance: DIPHENHYDRAMINE
     Dates: start: 20220428, end: 20220630
  20. DIPHENHYDRAMINE [Concomitant]
     Active Substance: DIPHENHYDRAMINE
     Route: 042
     Dates: start: 20220715, end: 20220715
  21. DOCUSATE [Concomitant]
     Active Substance: DOCUSATE
     Dates: start: 20220429
  22. ENOXAPARIN [Concomitant]
     Active Substance: ENOXAPARIN
     Dates: start: 20220428
  23. FEXOFENADINE [Concomitant]
     Active Substance: FEXOFENADINE HYDROCHLORIDE
     Dates: start: 20220424
  24. FILGRASTIM [Concomitant]
     Active Substance: FILGRASTIM
     Dates: start: 20220628, end: 20220628
  25. HYDROCORTISONE [Concomitant]
     Active Substance: HYDROCORTISONE
     Dates: start: 20220423, end: 20220630
  26. LEUCOVORIN [Concomitant]
     Active Substance: LEUCOVORIN
     Dates: start: 20220626
  27. LEVOFLOXACIN [Concomitant]
     Active Substance: LEVOFLOXACIN
     Dates: start: 20220630, end: 20220819
  28. LIDOCAINE [Concomitant]
     Active Substance: LIDOCAINE
     Dates: start: 20220630
  29. LORATADINE [Concomitant]
     Active Substance: LORATADINE
     Dates: start: 20220523, end: 20220719
  30. MAGNESIUM SULFATE [Concomitant]
     Active Substance: MAGNESIUM SULFATE
     Dates: start: 20220515
  31. METHOTREXATE [Concomitant]
     Active Substance: METHOTREXATE
     Route: 042
     Dates: start: 20220716, end: 20220716
  32. METHOTREXATE [Concomitant]
     Active Substance: METHOTREXATE
     Dates: start: 20220625, end: 20220716
  33. SODIUM CHLORIDE [Concomitant]
     Active Substance: SODIUM CHLORIDE
     Dates: start: 20220523
  34. SODIUM CHLORIDE [Concomitant]
     Active Substance: SODIUM CHLORIDE
     Dates: start: 20220729
  35. ONDANSETRON [Concomitant]
     Active Substance: ONDANSETRON
     Dates: start: 20220429, end: 20221208
  36. PALONOSETRON [Concomitant]
     Active Substance: PALONOSETRON
     Dates: start: 20220429
  37. PANTOPRAZOLE [Concomitant]
     Active Substance: PANTOPRAZOLE
     Dates: start: 20220429, end: 20221013
  38. PEGFILGRASTIM [Concomitant]
     Active Substance: PEGFILGRASTIM
     Dates: start: 20220520
  39. SENNA [Concomitant]
     Active Substance: SENNA LEAF\SENNOSIDES\SENNOSIDES A AND B
     Dates: start: 20220429
  40. SODIUM BICARBONATE [Concomitant]
     Active Substance: SODIUM BICARBONATE
     Dates: start: 20220603
  41. SODIUM BICARBONATE [Concomitant]
     Active Substance: SODIUM BICARBONATE
     Dates: start: 20220126
  42. SODIUM BICARBONATE [Concomitant]
     Active Substance: SODIUM BICARBONATE
     Dates: start: 20220125
  43. SODIUM CARBONATE [Concomitant]
     Active Substance: SODIUM CARBONATE
     Dates: start: 20220625
  44. SULFAMETHOXAZOLE\TRIMETHOPRIM [Concomitant]
     Active Substance: SULFAMETHOXAZOLE\TRIMETHOPRIM
     Route: 065
     Dates: start: 20220722, end: 20220819
  45. VANCOMYCIN [Concomitant]
     Active Substance: VANCOMYCIN
     Dates: start: 20220718, end: 20220718
  46. DEXAMETHASONE [Concomitant]
     Active Substance: DEXAMETHASONE
     Dates: start: 20220604, end: 20220716
  47. ACETAMINOPHEN [Concomitant]
     Active Substance: ACETAMINOPHEN
     Route: 048
     Dates: start: 20220715, end: 20220715
  48. ACETAMINOPHEN [Concomitant]
     Active Substance: ACETAMINOPHEN
     Dates: start: 20220722, end: 20220722
  49. ACETAMINOPHEN [Concomitant]
     Active Substance: ACETAMINOPHEN
     Dates: start: 20220627
  50. ACYCLOVIR [Concomitant]
     Active Substance: ACYCLOVIR
     Dates: start: 20220429
  51. APREPITANT [Concomitant]
     Active Substance: APREPITANT
     Dates: start: 20220701, end: 20220701
  52. APREPITANT [Concomitant]
     Active Substance: APREPITANT
     Dates: start: 20220729
  53. AZTREONAM [Concomitant]
     Active Substance: AZTREONAM
     Dates: start: 20220718, end: 20220718

REACTIONS (2)
  - Pneumonitis [Recovered/Resolved]
  - Urinary tract infection [Recovered/Resolved]

NARRATIVE: CASE EVENT DATE: 20220718
